FAERS Safety Report 13565635 (Version 1)
Quarter: 2017Q2

REPORT INFORMATION
  Report Type: Spontaneous
  Country: US (occurrence: US)
  Receive Date: 20170519
  Receipt Date: 20170519
  Transmission Date: 20170830
  Serious: No
  Sender: FDA-Public Use
  Company Number: US-BION-20160250

PATIENT
  Age: 68 Year
  Sex: Female

DRUGS (1)
  1. IBUPROFEN CAPSULES [Suspect]
     Active Substance: IBUPROFEN
     Indication: ANALGESIC THERAPY
     Dosage: 3 DSF IN THE MORNING AND 2 DSF IN THE AFTERNOON AND EVENING AS NEEDED
     Route: 048

REACTIONS (1)
  - Drug ineffective [Recovered/Resolved]

NARRATIVE: CASE EVENT DATE: 20160602
